FAERS Safety Report 20170564 (Version 1)
Quarter: 2021Q4

REPORT INFORMATION
  Report Type: Report from Study
  Country: US (occurrence: US)
  Receive Date: 20211210
  Receipt Date: 20211210
  Transmission Date: 20220303
  Serious: Yes (Hospitalization)
  Sender: FDA-Public Use
  Company Number: US-CELGENE-USA-20211201706

PATIENT
  Age: 71 Year
  Sex: Female
  Weight: 56.750 kg

DRUGS (1)
  1. ZEPOSIA [Suspect]
     Active Substance: OZANIMOD HYDROCHLORIDE
     Indication: Colitis ulcerative
     Dosage: .92 MILLIGRAM
     Route: 048
     Dates: start: 20210914, end: 20211110

REACTIONS (2)
  - Transient ischaemic attack [Recovered/Resolved]
  - Aneurysm [Recovered/Resolved]

NARRATIVE: CASE EVENT DATE: 20211110
